FAERS Safety Report 22367629 (Version 1)
Quarter: 2023Q2

REPORT INFORMATION
  Report Type: Spontaneous
  Country: US (occurrence: US)
  Receive Date: 20230525
  Receipt Date: 20230525
  Transmission Date: 20230722
  Serious: Yes (Hospitalization)
  Sender: FDA-Public Use
  Company Number: US-PARI RESPIRATORY EQUIPMENT, INC.-2023PAR00025

PATIENT
  Sex: Female
  Weight: 54.7 kg

DRUGS (2)
  1. KITABIS PAK [Suspect]
     Active Substance: TOBRAMYCIN
     Indication: Cystic fibrosis
     Dosage: 300MG/5 ML VIA NEBULIZER, 2X/DAY FOR 28 DAYS. USE EVERY OTHER MONTH (EVEN MONTHS)
     Dates: start: 20180531
  2. CLARITIN [Concomitant]
     Active Substance: LORATADINE

REACTIONS (1)
  - Catheterisation cardiac [Unknown]
